FAERS Safety Report 5923132-5 (Version None)
Quarter: 2008Q4

REPORT INFORMATION
  Report Type: 
  Country: None (occurrence: None)
  Receive Date: 20081015
  Receipt Date: 20081009
  Transmission Date: 20090506
  Serious: Yes (Other)
  Sender: FDA-Public Use
  Company Number: 035142

PATIENT
  Age: 21 Year
  Sex: Female
  Weight: 67.1 kg

DRUGS (1)
  1. PLAN B [Suspect]
     Indication: CONTRACEPTION
     Dosage: 1 TABLET, Q12HR, ORAL
     Route: 048
     Dates: start: 20081004, end: 20081005

REACTIONS (4)
  - DIZZINESS [None]
  - MENSTRUATION IRREGULAR [None]
  - SYNCOPE [None]
  - VAGINAL HAEMORRHAGE [None]
